FAERS Safety Report 20847775 (Version 1)
Quarter: 2022Q2

REPORT INFORMATION
  Report Type: Spontaneous
  Country: US (occurrence: US)
  Receive Date: 20220519
  Receipt Date: 20220519
  Transmission Date: 20220721
  Serious: No
  Sender: FDA-Public Use
  Company Number: US-UNITED THERAPEUTICS-UNT-2022-008472

PATIENT
  Age: 69 Year
  Sex: Male

DRUGS (3)
  1. REMODULIN [Suspect]
     Active Substance: TREPROSTINIL
     Indication: Pulmonary arterial hypertension
     Dosage: 0.006 ?G/KG, CONTINUING
     Route: 041
     Dates: start: 20220413
  2. REMODULIN [Suspect]
     Active Substance: TREPROSTINIL
     Dosage: 0.008 ?G/KG, CONTINUING
     Route: 041
     Dates: start: 202204
  3. REMODULIN [Suspect]
     Active Substance: TREPROSTINIL
     Dosage: 0.014 ?G/KG, CONTINUING
     Route: 041

REACTIONS (14)
  - Nausea [Unknown]
  - Oedema [Unknown]
  - Dizziness [Unknown]
  - Decreased appetite [Unknown]
  - Dyspepsia [Unknown]
  - Insomnia [Unknown]
  - Fatigue [Unknown]
  - Anxiety [Unknown]
  - Hernia [Unknown]
  - Injection site haemorrhage [Unknown]
  - Injection site pain [Unknown]
  - Headache [Unknown]
  - Somnolence [Unknown]
  - Disturbance in attention [Unknown]

NARRATIVE: CASE EVENT DATE: 20220401
